FAERS Safety Report 7558485-8 (Version None)
Quarter: 2011Q2

REPORT INFORMATION
  Report Type: 
  Country: None (occurrence: None)
  Receive Date: 20110620
  Receipt Date: 20110613
  Transmission Date: 20111010
  Serious: Yes (Other)
  Sender: FDA-Public Use
  Company Number: JP-MERCK-1105USA04118

PATIENT
  Age: 91 Year
  Sex: Female

DRUGS (4)
  1. LOXONIN [Concomitant]
     Route: 065
     Dates: start: 20110518, end: 20110606
  2. NORVASC [Concomitant]
     Indication: HYPERTENSION
     Route: 065
  3. MAGMITT [Concomitant]
     Route: 065
  4. PEPCID RPD [Suspect]
     Route: 048
     Dates: start: 20110518, end: 20110521

REACTIONS (1)
  - DEMENTIA [None]
